FAERS Safety Report 17258206 (Version 2)
Quarter: 2020Q1

REPORT INFORMATION
  Report Type: Spontaneous
  Country: US (occurrence: US)
  Receive Date: 20200110
  Receipt Date: 20200319
  Transmission Date: 20200409
  Serious: Yes (Other)
  Sender: FDA-Public Use
  Company Number: US-PFIZER INC-2020009569

PATIENT
  Age: 84 Year
  Sex: Female
  Weight: 58.97 kg

DRUGS (1)
  1. TOVIAZ [Suspect]
     Active Substance: FESOTERODINE FUMARATE
     Indication: URINARY INCONTINENCE
     Dosage: 8 MG, 1X/DAY [8MG 1 TABLET BY MOUTH IN THE EVENING]
     Route: 048

REACTIONS (5)
  - Drug dependence [Unknown]
  - Dysstasia [Unknown]
  - Pain [Unknown]
  - Body height decreased [Unknown]
  - Walking aid user [Unknown]
